FAERS Safety Report 25279285 (Version 1)
Quarter: 2025Q2

REPORT INFORMATION
  Report Type: Spontaneous
  Country: US (occurrence: None)
  Receive Date: 20250507
  Receipt Date: 20250507
  Transmission Date: 20250717
  Serious: Yes (Other)
  Sender: FDA-CTU
  Company Number: None

PATIENT
  Age: 37 Year
  Sex: Male

DRUGS (5)
  1. COSENTYX [Suspect]
     Active Substance: SECUKINUMAB
     Dates: start: 20250401
  2. IBUPROFEN [Concomitant]
     Active Substance: IBUPROFEN
  3. RIFAMPIN [Concomitant]
     Active Substance: RIFAMPIN
  4. CLINDAMYCIN [Concomitant]
     Active Substance: CLINDAMYCIN
  5. OLMESARTAN [Concomitant]
     Active Substance: OLMESARTAN

REACTIONS (4)
  - Chest pain [None]
  - Dysphagia [None]
  - Oropharyngeal pain [None]
  - Night sweats [None]
